FAERS Safety Report 8280769-9 (Version None)
Quarter: 2012Q2

REPORT INFORMATION
  Report Type: 
  Country: None (occurrence: None)
  Receive Date: 20120412
  Receipt Date: 20120409
  Transmission Date: 20120825
  Serious: Yes (Hospitalization)
  Sender: FDA-Public Use
  Company Number: GB-ABBOTT-12P-167-0923104-00

PATIENT
  Age: 94 Year
  Sex: Female

DRUGS (10)
  1. ASPIRIN [Concomitant]
     Indication: TRANSIENT ISCHAEMIC ATTACK
     Route: 048
  2. DALTEPARIN SODIUM [Concomitant]
     Indication: THROMBOSIS PROPHYLAXIS
     Route: 058
     Dates: start: 20120203, end: 20120207
  3. LANSOPRAZOLE [Concomitant]
     Indication: GASTROINTESTINAL DISORDER
     Route: 048
  4. FOLIC ACID [Concomitant]
     Indication: FOLATE DEFICIENCY
     Route: 048
  5. AMOXICILLIN AND CLAVULANATE POTASSIUM [Suspect]
     Indication: PNEUMONIA
     Route: 042
     Dates: start: 20120203, end: 20120212
  6. DIPYRIDAMOLE [Concomitant]
     Indication: TRANSIENT ISCHAEMIC ATTACK
     Route: 048
  7. AMLODIPINE [Concomitant]
     Indication: HYPERTENSION
     Route: 048
  8. KLARICID INJECTION [Suspect]
     Indication: PNEUMONIA
     Route: 042
     Dates: start: 20120206, end: 20120207
  9. OLANZAPINE [Concomitant]
     Indication: BIPOLAR I DISORDER
     Dosage: 10MG IN MORNING AND 5MG AT NIGHT
     Route: 048
  10. PRAVASTATIN [Concomitant]
     Indication: BLOOD CHOLESTEROL INCREASED
     Dosage: LONG TERM, AT NIGHT
     Route: 048

REACTIONS (3)
  - ALANINE AMINOTRANSFERASE INCREASED [None]
  - BLOOD ALKALINE PHOSPHATASE INCREASED [None]
  - HEPATITIS [None]
